FAERS Safety Report 24074769 (Version 1)
Quarter: 2024Q3

REPORT INFORMATION
  Report Type: Spontaneous
  Country: ES (occurrence: ES)
  Receive Date: 20240710
  Receipt Date: 20240710
  Transmission Date: 20241016
  Serious: Yes (Hospitalization, Other)
  Sender: MERCK
  Company Number: ES-MIRATI-MT2024CT06130

PATIENT
  Age: 70 Year
  Sex: Female
  Weight: 70 kg

DRUGS (8)
  1. PEMBROLIZUMAB [Suspect]
     Active Substance: PEMBROLIZUMAB
     Indication: Non-small cell lung cancer
     Dosage: 200 MG, Q3W
     Route: 042
     Dates: start: 20220811, end: 20240219
  2. PEMBROLIZUMAB [Suspect]
     Active Substance: PEMBROLIZUMAB
     Dosage: 200 MG, Q3W
     Route: 042
     Dates: start: 2024
  3. ADAGRASIB [Suspect]
     Active Substance: ADAGRASIB
     Indication: Non-small cell lung cancer
     Dosage: 400 MILLIGRAM, BID
     Route: 048
     Dates: start: 20220811
  4. ADAGRASIB [Suspect]
     Active Substance: ADAGRASIB
     Dosage: 400 MILLIGRAM, QD
     Route: 048
     Dates: end: 20240220
  5. ACETAMINOPHEN [Concomitant]
     Active Substance: ACETAMINOPHEN
     Indication: Pyrexia
     Dates: start: 20220811
  6. CALCIUM [CALCIUM LACTATE GLUCONATE] [Concomitant]
     Indication: Product used for unknown indication
     Dates: start: 20230717
  7. IBUPROFEN [Concomitant]
     Active Substance: IBUPROFEN
     Indication: Product used for unknown indication
     Dates: start: 20230717
  8. FUROSEMIDE [Concomitant]
     Active Substance: FUROSEMIDE
     Indication: Product used for unknown indication
     Dates: start: 20220627, end: 20240129

REACTIONS (1)
  - Osteonecrosis [Recovered/Resolved]

NARRATIVE: CASE EVENT DATE: 20240227
